FAERS Safety Report 10172725 (Version 2)
Quarter: 2014Q2

REPORT INFORMATION
  Report Type: Spontaneous
  Country: US (occurrence: None)
  Receive Date: 20140513
  Receipt Date: 20140627
  Transmission Date: 20141212
  Serious: Yes (Other)
  Sender: FDA-Public Use
  Company Number: 2014-US-000348

PATIENT
  Age: 64 Year
  Sex: Female
  Weight: 44.4 kg

DRUGS (7)
  1. XYREM [Suspect]
     Indication: FIBROMYALGIA
     Route: 048
     Dates: start: 200505, end: 2006
  2. LAXATIVES [Suspect]
     Indication: CONSTIPATION
  3. LORAZEPAM (LORAZEPAM) [Concomitant]
  4. KETOROLAC (KETOROLAC) [Concomitant]
  5. SOMA (CARISOPRODOL) [Concomitant]
  6. FLEXERIL (CYCLOBENZAPRINE HYDROCHLORIDE) [Concomitant]
  7. VALTREX (VALACICLOVIR HYDROCHLORIDE) [Concomitant]

REACTIONS (12)
  - Spinal laminectomy [None]
  - Pain in extremity [None]
  - Mobility decreased [None]
  - Constipation [None]
  - Insomnia [None]
  - Gastrointestinal pain [None]
  - Feeling hot [None]
  - Back injury [None]
  - Back pain [None]
  - Confusional state [None]
  - Off label use [None]
  - Wrong technique in drug usage process [None]
